FAERS Safety Report 7204417-1 (Version None)
Quarter: 2010Q4

REPORT INFORMATION
  Report Type: 
  Country: None (occurrence: None)
  Receive Date: 20101220
  Receipt Date: 20101210
  Transmission Date: 20110411
  Serious: Yes (Hospitalization, Other)
  Sender: FDA-Public Use
  Company Number: 110236

PATIENT
  Age: 24 Year
  Sex: Female

DRUGS (1)
  1. VALPROATE SODIUM [Suspect]
     Dosage: 125 X 500MG TABLETS

REACTIONS (15)
  - BLOOD CREATINE PHOSPHOKINASE INCREASED [None]
  - BLOOD LACTIC ACID INCREASED [None]
  - COMA [None]
  - CONTINUOUS HAEMODIAFILTRATION [None]
  - CONVULSION [None]
  - DRUG TOXICITY [None]
  - HYPERAMMONAEMIA [None]
  - INTENTIONAL OVERDOSE [None]
  - LEUKOPENIA [None]
  - MEDICATION ERROR [None]
  - METABOLIC ACIDOSIS [None]
  - PCO2 DECREASED [None]
  - SUICIDE ATTEMPT [None]
  - THROMBOCYTOPENIA [None]
  - WHITE BLOOD CELL COUNT INCREASED [None]
